FAERS Safety Report 7770240-2 (Version None)
Quarter: 2011Q3

REPORT INFORMATION
  Report Type: 
  Country: None (occurrence: None)
  Receive Date: 20110922
  Receipt Date: 20101110
  Transmission Date: 20111222
  Serious: No
  Sender: FDA-Public Use
  Company Number: US-ASTRAZENECA-2010SE49176

PATIENT
  Age: 602 Month
  Sex: Female
  Weight: 108.9 kg

DRUGS (1)
  1. SEROQUEL [Suspect]
     Indication: BIPOLAR DISORDER
     Dosage: 50 MILLIGRAMS DAILY AND 300 MILLIGRAMS AT NIGHT.
     Route: 048
     Dates: start: 20100201, end: 20101001

REACTIONS (8)
  - WEIGHT INCREASED [None]
  - DEPRESSED MOOD [None]
  - DRUG DOSE OMISSION [None]
  - LOSS OF EMPLOYMENT [None]
  - CRYING [None]
  - INSOMNIA [None]
  - ANXIETY [None]
  - DISTURBANCE IN ATTENTION [None]
